FAERS Safety Report 18214954 (Version 1)
Quarter: 2020Q3

REPORT INFORMATION
  Report Type: Spontaneous
  Country: US (occurrence: US)
  Receive Date: 20200831
  Receipt Date: 20200831
  Transmission Date: 20201103
  Serious: No
  Sender: FDA-Public Use
  Company Number: US-SA-2020SA228033

PATIENT

DRUGS (1)
  1. XYZAL [Suspect]
     Active Substance: LEVOCETIRIZINE DIHYDROCHLORIDE
     Dosage: UNK
     Route: 065

REACTIONS (5)
  - Sinus disorder [Unknown]
  - Drug hypersensitivity [Unknown]
  - Rash [Unknown]
  - Dyspnoea [Unknown]
  - Cough [Unknown]
